FAERS Safety Report 10038633 (Version 1)
Quarter: 2014Q1

REPORT INFORMATION
  Report Type: Report from Study
  Country: US (occurrence: US)
  Receive Date: 20140326
  Receipt Date: 20140326
  Transmission Date: 20141002
  Serious: Yes (Hospitalization)
  Sender: FDA-Public Use
  Company Number: US-ABBVIE-14P-163-1213669-00

PATIENT
  Age: 45 Year
  Sex: Female
  Weight: 48.58 kg

DRUGS (6)
  1. HUMIRA [Suspect]
     Indication: CROHN^S DISEASE
  2. HUMIRA [Suspect]
  3. HUMIRA [Suspect]
     Dates: end: 201310
  4. WELCHOL [Concomitant]
     Indication: CROHN^S DISEASE
  5. ENTOCORT [Concomitant]
     Indication: CROHN^S DISEASE
  6. HYDROCODONE [Concomitant]
     Indication: PAIN

REACTIONS (3)
  - Volvulus [Recovered/Resolved]
  - Large intestine perforation [Recovered/Resolved]
  - Crohn^s disease [Not Recovered/Not Resolved]
